FAERS Safety Report 5615159-8 (Version None)
Quarter: 2008Q1

REPORT INFORMATION
  Report Type: 
  Country: None (occurrence: None)
  Receive Date: 20080206
  Receipt Date: 20070914
  Transmission Date: 20080703
  Serious: No
  Sender: FDA-Public Use
  Company Number: A0682115A

PATIENT
  Age: 48 Year
  Sex: Female

DRUGS (2)
  1. ARIXTRA [Suspect]
     Indication: DEEP VEIN THROMBOSIS
     Route: 058
     Dates: start: 20070908
  2. IRINOTECAN [Suspect]
     Indication: COLON CANCER
     Route: 065

REACTIONS (1)
  - DIARRHOEA [None]
